FAERS Safety Report 4780595-9 (Version None)
Quarter: 2005Q3

REPORT INFORMATION
  Report Type: 
  Country: None (occurrence: None)
  Receive Date: 20050926
  Receipt Date: 20050914
  Transmission Date: 20060218
  Serious: Yes (Hospitalization, Other)
  Sender: FDA-Public Use
  Company Number: USA-2003-0012154

PATIENT
  Age: 40 Year
  Sex: Male
  Weight: 81.6475 kg

DRUGS (11)
  1. OXYCONTIN [Suspect]
     Indication: PAIN
     Dosage: 20 MG Q12H
  2. SENOKOT [Concomitant]
  3. VALIUM [Concomitant]
  4. LORCET-HD [Concomitant]
  5. ROBAXIN (METOCARBAMOL) [Concomitant]
  6. IMITREX [Concomitant]
  7. FLEXERIL [Concomitant]
  8. NAPROSYN [Concomitant]
  9. ZANAFLEX [Concomitant]
  10. PROPANOLOL (PROPANOLOL) [Concomitant]
  11. CELEBREX [Concomitant]

REACTIONS (40)
  - ANXIETY [None]
  - ARTHRALGIA [None]
  - ASTHENIA [None]
  - BRONCHITIS [None]
  - CONSTIPATION [None]
  - DECREASED APPETITE [None]
  - DEPRESSION [None]
  - DIARRHOEA [None]
  - DISTURBANCE IN ATTENTION [None]
  - DRUG DEPENDENCE [None]
  - DRUG DISPENSING ERROR [None]
  - DRUG WITHDRAWAL SYNDROME [None]
  - FEELING COLD [None]
  - FEELING HOT AND COLD [None]
  - HEADACHE [None]
  - HOT FLUSH [None]
  - HYPERTENSION [None]
  - HYPERTHYROIDISM [None]
  - HYPOAESTHESIA [None]
  - IMPRISONMENT [None]
  - INADEQUATE ANALGESIA [None]
  - INJURY [None]
  - IRRITABILITY [None]
  - MUSCLE SPASMS [None]
  - NASAL CONGESTION [None]
  - OEDEMA PERIPHERAL [None]
  - ORAL INTAKE REDUCED [None]
  - PAIN [None]
  - PHOTOPHOBIA [None]
  - POLYTRAUMATISM [None]
  - POLYURIA [None]
  - PRODUCTIVE COUGH [None]
  - PRURITUS [None]
  - RHINORRHOEA [None]
  - SKIN LACERATION [None]
  - SPUTUM DISCOLOURED [None]
  - TEMPERATURE INTOLERANCE [None]
  - THIRST [None]
  - VISION BLURRED [None]
  - WOUND [None]
